FAERS Safety Report 4663155-X (Version None)
Quarter: 2005Q2

REPORT INFORMATION
  Report Type: 
  Country: None (occurrence: None)
  Receive Date: 20050513
  Receipt Date: 20050504
  Transmission Date: 20051028
  Serious: Yes (Other)
  Sender: FDA-Public Use
  Company Number: 211958

PATIENT
  Age: 56 Year
  Sex: Female
  Weight: 76.6 kg

DRUGS (8)
  1. AVASTIN [Suspect]
     Indication: COLORECTAL CANCER METASTATIC
     Dosage: 5 MG/KG, Q2W, INTRAVENOUS
     Route: 042
     Dates: start: 20041006
  2. IRINOTECAN HCL [Concomitant]
  3. FLUOROURACIL [Concomitant]
  4. LEUCOVORIN CALCIUM [Concomitant]
  5. AMBIEN [Concomitant]
  6. PHENERGAN [Concomitant]
  7. COUMADIN [Concomitant]
  8. ALEVE [Concomitant]

REACTIONS (1)
  - DUODENAL ULCER [None]
